FAERS Safety Report 8418045-3 (Version None)
Quarter: 2012Q2

REPORT INFORMATION
  Report Type: 
  Country: None (occurrence: None)
  Receive Date: 20120607
  Receipt Date: 20120529
  Transmission Date: 20120825
  Serious: Yes (Hospitalization)
  Sender: FDA-Public Use
  Company Number: BR-ABBOTT-12P-020-0940595-00

PATIENT
  Sex: Female
  Weight: 61 kg

DRUGS (6)
  1. CLOMIPRAMINE HYDROCHLORIDE [Concomitant]
     Indication: DEPRESSION
     Dosage: 2 TABS PER NIGHT
     Route: 048
     Dates: start: 20100101, end: 20111201
  2. LEVOTHYROXINE SODIUM [Concomitant]
     Indication: THYROID DISORDER
     Route: 048
     Dates: start: 20120401
  3. DEPAKENE [Suspect]
     Dosage: 1/2 TAB IN MORNING AND 1/2 TAB AT NIGHT
     Route: 048
     Dates: start: 20120517
  4. DEPAKENE [Suspect]
     Indication: PRODUCT USED FOR UNKNOWN INDICATION
     Dates: start: 20110101
  5. CLOMIPRAMINE HYDROCHLORIDE [Concomitant]
     Dosage: 2 TABS PER NIGHT
     Route: 048
     Dates: start: 20120517
  6. CLONAZEPAM [Concomitant]
     Indication: SLEEP DISORDER THERAPY
     Route: 048
     Dates: start: 20120401

REACTIONS (5)
  - BLOOD CALCIUM DECREASED [None]
  - WRONG TECHNIQUE IN DRUG USAGE PROCESS [None]
  - HEADACHE [None]
  - BITE [None]
  - HOSPITALISATION [None]
